FAERS Safety Report 9703809 (Version 1)
Quarter: 2013Q4

REPORT INFORMATION
  Report Type: Spontaneous
  Country: US (occurrence: None)
  Receive Date: 20131121
  Receipt Date: 20131121
  Transmission Date: 20140711
  Serious: No
  Sender: FDA-Public Use
  Company Number: None

PATIENT
  Age: 28 Year
  Sex: Female
  Weight: 126.55 kg

DRUGS (1)
  1. RIBAVIRIN [Suspect]
     Indication: HEPATITIS C
     Dosage: 200 MG 3 TABLETS TWICE PER BY MOUTH
     Route: 048
     Dates: start: 20131106

REACTIONS (3)
  - Nausea [None]
  - Pain [None]
  - Pyrexia [None]
